FAERS Safety Report 15241086 (Version 1)
Quarter: 2018Q3

REPORT INFORMATION
  Report Type: Spontaneous
  Country: US (occurrence: US)
  Receive Date: 20180711
  Receipt Date: 20180711
  Transmission Date: 20181010
  Serious: Yes (Other)
  Sender: FDA-Public Use
  Company Number: None

PATIENT
  Age: 56 Year
  Sex: Female
  Weight: 59.42 kg

DRUGS (1)
  1. DULOXETINE 30MG [Suspect]
     Active Substance: DULOXETINE
     Indication: DEPRESSION
     Route: 048
     Dates: start: 20180613, end: 20180628

REACTIONS (2)
  - Crying [None]
  - Drug intolerance [None]

NARRATIVE: CASE EVENT DATE: 20180613
